FAERS Safety Report 24571288 (Version 2)
Quarter: 2024Q4

REPORT INFORMATION
  Report Type: Spontaneous
  Country: CN (occurrence: CN)
  Receive Date: 20241101
  Receipt Date: 20241105
  Transmission Date: 20250115
  Serious: Yes (Other)
  Sender: BRISTOL-MYERS SQUIBB COMPANY
  Company Number: CN-BRISTOL-MYERS SQUIBB COMPANY-2024-170345

PATIENT
  Age: 74 Year
  Sex: Female
  Weight: 57.3 kg

DRUGS (4)
  1. OPDIVO [Suspect]
     Active Substance: NIVOLUMAB
     Indication: Gastric cancer
     Route: 041
     Dates: start: 20240320, end: 20240320
  2. PACLITAXEL [Suspect]
     Active Substance: PACLITAXEL
     Indication: Gastric cancer
     Dosage: D1
     Dates: start: 20240320, end: 20240320
  3. PACLITAXEL [Suspect]
     Active Substance: PACLITAXEL
     Dosage: D1
     Dates: start: 20240320, end: 20240320
  4. TEGAFUR [Suspect]
     Active Substance: TEGAFUR
     Indication: Gastric cancer
     Dosage: D1-14, ONCE 3 WEEKS
     Dates: start: 20240320, end: 20240323

REACTIONS (5)
  - Rash [Recovering/Resolving]
  - Myelosuppression [Recovering/Resolving]
  - Nausea [Recovering/Resolving]
  - Neurotoxicity [Recovering/Resolving]
  - Off label use [Unknown]

NARRATIVE: CASE EVENT DATE: 20240323
